FAERS Safety Report 23323158 (Version 6)
Quarter: 2024Q2

REPORT INFORMATION
  Report Type: Report from Study
  Country: EG (occurrence: EG)
  Receive Date: 20231220
  Receipt Date: 20240617
  Transmission Date: 20240716
  Serious: Yes (Other)
  Sender: FDA-Public Use
  Company Number: EG-JNJFOC-20231245563

PATIENT
  Age: 32 Year
  Sex: Female

DRUGS (4)
  1. PONESIMOD [Suspect]
     Active Substance: PONESIMOD
     Indication: Multiple sclerosis
     Route: 048
     Dates: start: 20231212
  2. PONESIMOD [Suspect]
     Active Substance: PONESIMOD
     Route: 048
     Dates: start: 20231225
  3. PONESIMOD [Suspect]
     Active Substance: PONESIMOD
     Route: 048
     Dates: start: 20231210
  4. CITALOPRAM HYDROBROMIDE [Suspect]
     Active Substance: CITALOPRAM HYDROBROMIDE
     Indication: Product used for unknown indication
     Route: 065
     Dates: start: 202312

REACTIONS (21)
  - Loss of consciousness [Recovering/Resolving]
  - Syncope [Recovered/Resolved]
  - Colitis [Not Recovered/Not Resolved]
  - Cough [Not Recovered/Not Resolved]
  - Somnolence [Recovering/Resolving]
  - Dyspnoea [Recovering/Resolving]
  - Dizziness [Recovered/Resolved]
  - Hot flush [Recovering/Resolving]
  - Heart rate increased [Recovering/Resolving]
  - Pain in extremity [Recovered/Resolved]
  - Influenza [Not Recovered/Not Resolved]
  - Muscle rigidity [Unknown]
  - Hypotension [Unknown]
  - Pain [Unknown]
  - Hypersensitivity [Not Recovered/Not Resolved]
  - Oedema [Not Recovered/Not Resolved]
  - Myalgia [Not Recovered/Not Resolved]
  - Weight increased [Not Recovered/Not Resolved]
  - Hypertension [Not Recovered/Not Resolved]
  - Nasopharyngitis [Unknown]
  - Oedema peripheral [Unknown]

NARRATIVE: CASE EVENT DATE: 20231201
